FAERS Safety Report 17740404 (Version 1)
Quarter: 2020Q2

REPORT INFORMATION
  Report Type: Spontaneous
  Country: US (occurrence: US)
  Receive Date: 20200501
  Receipt Date: 20200501
  Transmission Date: 20200714
  Serious: No
  Sender: FDA-Public Use
  Company Number: None

PATIENT
  Sex: Female

DRUGS (1)
  1. OCTREOTIDE 50 1 ML PF SYR 50MCG/ML MYLAN INSTITUTIONAL [Suspect]
     Active Substance: OCTREOTIDE
     Indication: CONGENITAL PANCREATIC ANOMALY
     Dosage: ?          OTHER STRENGTH:1ML   50MCG/ML;?
     Route: 058
     Dates: start: 20200401

REACTIONS (3)
  - Therapy interrupted [None]
  - Stomatitis [None]
  - Chapped lips [None]
